FAERS Safety Report 7942533-7 (Version None)
Quarter: 2011Q4

REPORT INFORMATION
  Report Type: 
  Country: None (occurrence: None)
  Receive Date: 20111128
  Receipt Date: 20111117
  Transmission Date: 20120403
  Serious: Yes (Hospitalization)
  Sender: FDA-Public Use
  Company Number: IE-GLAXOSMITHKLINE-B0763036A

PATIENT
  Sex: Female
  Weight: 72.2 kg

DRUGS (13)
  1. CARBOPLATIN [Suspect]
     Indication: BREAST CANCER
     Dosage: 960MG EVERY 3 WEEKS
     Route: 042
     Dates: start: 20111028
  2. LACTOSE [Concomitant]
     Route: 048
     Dates: start: 20111030, end: 20111030
  3. DEXAMETHASONE [Concomitant]
     Dosage: 8MG PER DAY
     Route: 048
     Dates: start: 20111029
  4. SENOKOT [Concomitant]
     Route: 048
     Dates: start: 20111029, end: 20111030
  5. HERCEPTIN [Suspect]
     Indication: BREAST CANCER
     Dosage: 578MG EVERY 3 WEEKS
     Route: 042
     Dates: start: 20111028
  6. TAXOTERE [Suspect]
     Indication: BREAST CANCER
     Dosage: 135MG EVERY 3 WEEKS
     Route: 042
     Dates: start: 20111028
  7. ALOXI [Concomitant]
     Dosage: .25MG PER DAY
     Route: 042
     Dates: start: 20111028, end: 20111028
  8. ZANTAC [Concomitant]
     Dosage: 50MG PER DAY
     Route: 042
     Dates: start: 20111028, end: 20111028
  9. LANSOPRAZOLE [Concomitant]
     Dosage: 30MG PER DAY
     Route: 048
     Dates: start: 20111029
  10. EMEND [Concomitant]
     Dosage: 125MG PER DAY
     Route: 048
     Dates: start: 20111028, end: 20111028
  11. DEXAMETHASONE [Concomitant]
     Dosage: 16MG PER DAY
     Route: 042
     Dates: start: 20111028, end: 20111028
  12. EMEND [Concomitant]
     Dosage: 80MG PER DAY
     Route: 048
     Dates: start: 20111029
  13. LAPATINIB [Suspect]
     Indication: BREAST CANCER
     Dosage: 1000MG PER DAY
     Route: 048
     Dates: start: 20111028, end: 20111102

REACTIONS (3)
  - NEUTROPENIC SEPSIS [None]
  - DIARRHOEA [None]
  - URINARY TRACT INFECTION [None]
